FAERS Safety Report 4277839-9 (Version None)
Quarter: 2004Q1

REPORT INFORMATION
  Report Type: 
  Country: None (occurrence: None)
  Receive Date: 20040121
  Receipt Date: 20031010
  Transmission Date: 20041129
  Serious: Yes (Hospitalization)
  Sender: FDA-Public Use
  Company Number: RB-195-2003

PATIENT
  Age: 22 Year
  Sex: Male

DRUGS (1)
  1. BUPRENORPHINE HYDROCHLORIDE [Suspect]
     Dosage: IV
     Route: 042
     Dates: start: 19990115

REACTIONS (6)
  - ATAXIA [None]
  - CANDIDIASIS [None]
  - DIFFICULTY IN WALKING [None]
  - DRUG ABUSER [None]
  - MEDICATION ERROR [None]
  - SUBDURAL EMPYEMA [None]
